FAERS Safety Report 16657498 (Version 1)
Quarter: 2019Q3

REPORT INFORMATION
  Report Type: Spontaneous
  Country: US (occurrence: US)
  Receive Date: 20190801
  Receipt Date: 20190801
  Transmission Date: 20191004
  Serious: No
  Sender: FDA-Public Use
  Company Number: US-SA-2019SA205399

PATIENT
  Sex: Female

DRUGS (1)
  1. DUPIXENT [Suspect]
     Active Substance: DUPILUMAB
     Indication: DERMATITIS ATOPIC
     Dosage: 300 MG, EVERY OTHER
     Route: 058
     Dates: start: 20180524

REACTIONS (4)
  - Skin laceration [Unknown]
  - Fall [Unknown]
  - Joint injury [Unknown]
  - Skin injury [Unknown]

NARRATIVE: CASE EVENT DATE: 20190707
